FAERS Safety Report 23405299 (Version 1)
Quarter: 2024Q1

REPORT INFORMATION
  Report Type: Report from Study
  Country: AR (occurrence: AR)
  Receive Date: 20240116
  Receipt Date: 20240116
  Transmission Date: 20240410
  Serious: Yes (Other)
  Sender: FDA-Public Use
  Company Number: AR-ABBVIE-5588024

PATIENT
  Age: 43 Year
  Sex: Female

DRUGS (1)
  1. HUMIRA [Suspect]
     Active Substance: ADALIMUMAB
     Indication: Psoriatic arthropathy
     Dosage: FORM STRENGTH 40 MILLIGRAMS
     Route: 058
     Dates: start: 20200210

REACTIONS (1)
  - Genital haemorrhage [Not Recovered/Not Resolved]

NARRATIVE: CASE EVENT DATE: 20231106
